FAERS Safety Report 20379126 (Version 1)
Quarter: 2022Q1

REPORT INFORMATION
  Report Type: Spontaneous
  Country: US (occurrence: US)
  Receive Date: 20220126
  Receipt Date: 20220126
  Transmission Date: 20220423
  Serious: Yes (Other)
  Sender: FDA-Public Use
  Company Number: US-GILEAD-2022-0566534

PATIENT
  Age: 60 Year
  Sex: Female
  Weight: 117 kg

DRUGS (2)
  1. VEKLURY [Suspect]
     Active Substance: REMDESIVIR
     Indication: Product used for unknown indication
     Dosage: 200 MG
     Route: 042
     Dates: start: 20220106, end: 20220106
  2. VEKLURY [Suspect]
     Active Substance: REMDESIVIR
     Dosage: 100 MG, QD
     Route: 042
     Dates: start: 20220107, end: 20220108

REACTIONS (1)
  - Bradycardia [Recovered/Resolved]

NARRATIVE: CASE EVENT DATE: 20220108
